FAERS Safety Report 20402542 (Version 2)
Quarter: 2022Q1

REPORT INFORMATION
  Report Type: Spontaneous
  Country: US (occurrence: US)
  Receive Date: 20220131
  Receipt Date: 20220201
  Transmission Date: 20220423
  Serious: No
  Sender: FDA-Public Use
  Company Number: US-ABBVIE-21K-163-4115418-00

PATIENT
  Sex: Female

DRUGS (15)
  1. HUMIRA [Suspect]
     Active Substance: ADALIMUMAB
     Indication: Rheumatoid arthritis
     Dosage: CF
     Route: 058
     Dates: start: 2018, end: 2019
  2. HUMIRA [Suspect]
     Active Substance: ADALIMUMAB
     Dosage: CF
     Route: 058
     Dates: start: 2019, end: 202109
  3. PREDNISONE [Concomitant]
     Active Substance: PREDNISONE
     Indication: Rheumatoid arthritis
  4. MODERNA COVID-19 VACCINE [Concomitant]
     Active Substance: ELASOMERAN
     Indication: COVID-19 immunisation
     Route: 030
  5. TYLENOL [Concomitant]
     Active Substance: ACETAMINOPHEN
     Indication: Arthralgia
  6. DICLOFENAC [Concomitant]
     Active Substance: DICLOFENAC
     Indication: Spinal fusion surgery
  7. DICLOFENAC [Concomitant]
     Active Substance: DICLOFENAC
     Indication: Spinal fusion surgery
  8. CYMBALTA [Concomitant]
     Active Substance: DULOXETINE HYDROCHLORIDE
     Indication: Pain
  9. CYMBALTA [Concomitant]
     Active Substance: DULOXETINE HYDROCHLORIDE
     Indication: Anxiety
  10. SYNTHROID [Concomitant]
     Active Substance: LEVOTHYROXINE SODIUM
     Indication: Thyroid hormone replacement therapy
  11. VITAMIN D [Concomitant]
     Active Substance: VITAMIN D NOS
     Indication: Vitamin D decreased
  12. CALCIUM [Concomitant]
     Active Substance: CALCIUM
     Indication: Blood calcium decreased
  13. ESTRADIOL [Concomitant]
     Active Substance: ESTRADIOL
     Indication: Hormone replacement therapy
  14. VICODIN [Concomitant]
     Active Substance: ACETAMINOPHEN\HYDROCODONE BITARTRATE
     Indication: Pain
     Dosage: AS NEEDED
  15. FLEXERIL [Concomitant]
     Active Substance: CYCLOBENZAPRINE HYDROCHLORIDE
     Indication: Muscle relaxant therapy

REACTIONS (10)
  - Swelling [Not Recovered/Not Resolved]
  - Musculoskeletal stiffness [Not Recovered/Not Resolved]
  - White blood cell count increased [Not Recovered/Not Resolved]
  - Drug ineffective [Unknown]
  - Rheumatoid arthritis [Not Recovered/Not Resolved]
  - Pain [Not Recovered/Not Resolved]
  - Hepatitis B [Not Recovered/Not Resolved]
  - Herpes zoster [Not Recovered/Not Resolved]
  - Rheumatoid arthritis [Recovered/Resolved]
  - Therapeutic response shortened [Not Recovered/Not Resolved]

NARRATIVE: CASE EVENT DATE: 20180101
